FAERS Safety Report 5996495-2 (Version None)
Quarter: 2008Q4

REPORT INFORMATION
  Report Type: 
  Country: None (occurrence: None)
  Receive Date: 20081204
  Receipt Date: 20081120
  Transmission Date: 20090506
  Serious: Yes (Other)
  Sender: FDA-Public Use
  Company Number: GB-JNJFOC-20081102195

PATIENT
  Age: 47 Year
  Sex: Female

DRUGS (4)
  1. DECITABINE (DECITABINE) LYOPHILIZED POWDER [Suspect]
     Indication: OVARIAN CANCER
     Dosage: 45 MG/M2, INTRAVENOUS
     Route: 042
     Dates: start: 20080929, end: 20080929
  2. DECITABINE (DECITABINE) LYOPHILIZED POWDER [Suspect]
     Indication: OVARIAN CANCER
     Dosage: 45 MG/M2, INTRAVENOUS
     Route: 042
     Dates: start: 20081027, end: 20081027
  3. CARBOPLATIN [Suspect]
     Indication: OVARIAN CANCER
     Dosage: 680 MG, 1 IN 1 CYCLICAL, INTRAVENOUS
     Route: 042
     Dates: start: 20081006, end: 20081006
  4. CARBOPLATIN [Suspect]
     Indication: OVARIAN CANCER
     Dosage: 680 MG, 1 IN 1 CYCLICAL, INTRAVENOUS
     Route: 042
     Dates: start: 20081103, end: 20081103

REACTIONS (1)
  - HYPERSENSITIVITY [None]
